FAERS Safety Report 10199405 (Version 1)
Quarter: 2014Q2

REPORT INFORMATION
  Report Type: Spontaneous
  Country: US (occurrence: US)
  Receive Date: 20140527
  Receipt Date: 20140527
  Transmission Date: 20141212
  Serious: No
  Sender: FDA-Public Use
  Company Number: US-NOVEN-14US008617

PATIENT
  Age: 14 Year
  Sex: Male
  Weight: 56.69 kg

DRUGS (2)
  1. DAYTRANA [Suspect]
     Indication: ATTENTION DEFICIT/HYPERACTIVITY DISORDER
     Dosage: 10 MG, X2 PATCHES
     Route: 062
  2. DAYTRANA [Suspect]
     Dosage: 10 MG, UNK

REACTIONS (2)
  - Wrong technique in drug usage process [Not Recovered/Not Resolved]
  - No adverse event [None]
